FAERS Safety Report 15486737 (Version 2)
Quarter: 2024Q3

REPORT INFORMATION
  Report Type: Report from Study
  Country: ES (occurrence: ES)
  Receive Date: 20181011
  Receipt Date: 20240718
  Transmission Date: 20241017
  Serious: Yes (Hospitalization, Other)
  Sender: PURDUE
  Company Number: ES-KYOWAKIRIN-2018BKK000685

PATIENT
  Age: 51 Year
  Sex: Female

DRUGS (29)
  1. MORPHINE SULFATE [Suspect]
     Active Substance: MORPHINE SULFATE
     Indication: Breakthrough pain
     Dosage: UNK
     Route: 065
  2. MORPHINE [Suspect]
     Active Substance: MORPHINE
     Indication: Product used for unknown indication
     Dosage: UNK
     Route: 042
  3. MORPHINE [Suspect]
     Active Substance: MORPHINE
     Indication: Breakthrough pain
     Dosage: UNK
     Route: 058
  4. MORPHINE [Suspect]
     Active Substance: MORPHINE
     Dosage: 1.5 ML, UNK (OF MORPHINE 2 PERCENT)
     Route: 065
  5. MORPHINE [Suspect]
     Active Substance: MORPHINE
     Dosage: UNK
     Route: 058
     Dates: start: 201709
  6. FENTANYL [Suspect]
     Active Substance: FENTANYL\FENTANYL CITRATE
     Indication: Breakthrough pain
     Dosage: 400 MCG, UNK
     Route: 060
  7. FENTANYL [Suspect]
     Active Substance: FENTANYL\FENTANYL CITRATE
     Dosage: 300 MCG, UNK
     Route: 060
  8. FENTANYL [Suspect]
     Active Substance: FENTANYL\FENTANYL CITRATE
     Dosage: 200 MCG, UNK (2-3 TIMES A DAY)
     Route: 060
  9. FENTANYL [Suspect]
     Active Substance: FENTANYL\FENTANYL CITRATE
     Dosage: 200 MCG, UNK (2-3 TIMES A DAY)
     Route: 060
  10. FENTANYL [Suspect]
     Active Substance: FENTANYL\FENTANYL CITRATE
     Dosage: 200 MCG, UNK (7-10 TIMES PER DAY)
     Route: 060
     Dates: start: 201708
  11. FENTANYL [Suspect]
     Active Substance: FENTANYL\FENTANYL CITRATE
     Dosage: 150 MICROGRAM, EVERY 3 DAYS
     Route: 062
  12. FENTANYL [Suspect]
     Active Substance: FENTANYL\FENTANYL CITRATE
     Dosage: UNK
     Route: 062
     Dates: start: 201708
  13. FENTANYL [Suspect]
     Active Substance: FENTANYL\FENTANYL CITRATE
     Indication: Breakthrough pain
     Dosage: 150 MCG, Q3D
     Route: 062
  14. FENTANYL [Suspect]
     Active Substance: FENTANYL\FENTANYL CITRATE
     Dosage: UNK (UP TO 250 MCG/H)
     Route: 062
  15. DENOSUMAB [Concomitant]
     Active Substance: DENOSUMAB
     Indication: Product used for unknown indication
     Dosage: 120 MG, UNK (28 DAYS)
     Route: 058
  16. CARBOPLATIN [Concomitant]
     Active Substance: CARBOPLATIN
     Indication: Lung adenocarcinoma stage IV
     Dosage: UNK
     Route: 065
  17. CARBOPLATIN [Concomitant]
     Active Substance: CARBOPLATIN
     Indication: Lung adenocarcinoma stage IV
  18. METHADONE [Concomitant]
     Active Substance: METHADONE HYDROCHLORIDE
     Indication: Product used for unknown indication
     Dosage: 15 MG, Q8H
     Route: 048
  19. LACTULOSE [Concomitant]
     Active Substance: LACTULOSE
     Indication: Constipation
     Dosage: UNK
     Route: 065
  20. ERGOCALCIFEROL [Concomitant]
     Active Substance: ERGOCALCIFEROL
     Indication: Product used for unknown indication
     Dosage: UNK
     Route: 048
  21. CALCIUM [Concomitant]
     Active Substance: CALCIUM
     Indication: Product used for unknown indication
     Dosage: UNK
     Route: 065
  22. PEMETREXED [Concomitant]
     Active Substance: PEMETREXED
     Indication: Lung adenocarcinoma stage IV
     Dosage: UNK
     Route: 065
  23. DOCETAXEL [Concomitant]
     Active Substance: DOCETAXEL\DOCETAXEL ANHYDROUS
     Indication: Lung adenocarcinoma stage IV
     Dosage: UNK
     Route: 065
  24. BUTYLSCOPOLAMINE [Concomitant]
     Active Substance: BUTYLSCOPOLAMINE
     Indication: Product used for unknown indication
     Dosage: UNK
     Route: 065
  25. PREGABALIN [Concomitant]
     Active Substance: PREGABALIN
     Indication: Product used for unknown indication
     Dosage: 75 MG, Q12H
     Route: 065
  26. POLYETHYLENE GLYCOLS [Concomitant]
     Active Substance: POLYETHYLENE GLYCOLS
     Indication: Constipation
     Dosage: UNK
     Route: 065
  27. DEXAMETHASONE [Concomitant]
     Active Substance: DEXAMETHASONE
     Indication: Product used for unknown indication
     Dosage: 4 MG, Q12H
     Route: 065
  28. VITAMIN D [Concomitant]
     Active Substance: VITAMIN D NOS
     Indication: Product used for unknown indication
     Dosage: UNK
     Route: 048
  29. NINTEDANIB [Concomitant]
     Active Substance: NINTEDANIB
     Indication: Lung adenocarcinoma stage IV
     Dosage: UNK
     Route: 065
     Dates: start: 201710

REACTIONS (13)
  - Drug dose titration not performed [Unknown]
  - Disorientation [Unknown]
  - Gait disturbance [Unknown]
  - Incoherent [Unknown]
  - Toxicity to various agents [Recovered/Resolved]
  - Dysarthria [Unknown]
  - Hallucination, visual [Unknown]
  - Constipation [Recovering/Resolving]
  - Constipation [Recovering/Resolving]
  - Hyperhidrosis [Unknown]
  - Drug abuse [Unknown]
  - Overdose [Unknown]
  - Intentional product misuse [Unknown]

NARRATIVE: CASE EVENT DATE: 20170101
